FAERS Safety Report 8341413-5 (Version None)
Quarter: 2012Q2

REPORT INFORMATION
  Report Type: 
  Country: None (occurrence: None)
  Receive Date: 20120507
  Receipt Date: 20091223
  Transmission Date: 20120825
  Serious: No
  Sender: FDA-Public Use
  Company Number: US-TEVA-2009029871

PATIENT
  Sex: Male
  Weight: 77.18 kg

DRUGS (2)
  1. TREANDA [Suspect]
     Indication: CHRONIC LYMPHOCYTIC LEUKAEMIA
     Route: 042
  2. TREANDA [Suspect]
     Dosage: 4 DOSAGE FORMS;
     Route: 042
     Dates: start: 20091221, end: 20091222

REACTIONS (2)
  - DIARRHOEA [None]
  - CONSTIPATION [None]
